FAERS Safety Report 20440296 (Version 1)
Quarter: 2022Q1

REPORT INFORMATION
  Report Type: Spontaneous
  Country: US (occurrence: US)
  Receive Date: 20220207
  Receipt Date: 20220207
  Transmission Date: 20220423
  Serious: Yes (Hospitalization, Other)
  Sender: FDA-Public Use
  Company Number: US-TARO-2022TAR00171

PATIENT
  Age: 84 Year
  Sex: Female

DRUGS (9)
  1. FLUCONAZOLE [Interacting]
     Active Substance: FLUCONAZOLE
     Indication: Intertrigo
     Dosage: 100 MG, DAILY
     Route: 048
  2. FLUCONAZOLE [Interacting]
     Active Substance: FLUCONAZOLE
     Indication: Cellulitis
  3. VERAPAMIL [Interacting]
     Active Substance: VERAPAMIL HYDROCHLORIDE
     Indication: Atrioventricular block
     Dosage: 120 MG, DAILY
     Route: 065
  4. PROPRANOLOL [Suspect]
     Active Substance: PROPRANOLOL HYDROCHLORIDE
     Indication: Atrioventricular block
     Dosage: 40 MG, BID
     Route: 065
  5. TINACTIN [Concomitant]
     Active Substance: TOLNAFTATE
     Indication: Breast pain
     Dosage: UNK UNK, BID
     Route: 065
  6. TINACTIN [Concomitant]
     Active Substance: TOLNAFTATE
     Indication: Erythema
  7. CEFAZOLIN [Concomitant]
     Active Substance: CEFAZOLIN
     Dosage: 1 G Q8H
  8. COUMADIN [Concomitant]
     Active Substance: WARFARIN SODIUM
  9. Duoneb inhalers [Concomitant]

REACTIONS (4)
  - Bradycardia [Recovered/Resolved]
  - Drug interaction [Unknown]
  - Acute kidney injury [Recovering/Resolving]
  - Hyperkalaemia [Unknown]
